APPROVED DRUG PRODUCT: CARDIOGEN-82
Active Ingredient: RUBIDIUM CHLORIDE RB-82
Strength: N/A
Dosage Form/Route: INJECTABLE;INJECTION
Application: N019414 | Product #001
Applicant: BRACCO DIAGNOSTICS INC
Approved: Dec 29, 1989 | RLD: No | RS: No | Type: RX